FAERS Safety Report 15409561 (Version 1)
Quarter: 2018Q3

REPORT INFORMATION
  Report Type: Report from Study
  Country: US (occurrence: US)
  Receive Date: 20180920
  Receipt Date: 20180920
  Transmission Date: 20181010
  Serious: Yes (Hospitalization)
  Sender: FDA-Public Use
  Company Number: US-ACTELION-A-US2018-178864

PATIENT
  Age: 31 Year
  Sex: Female

DRUGS (5)
  1. POTASSIUM [Concomitant]
     Active Substance: POTASSIUM
     Dosage: 10 MG, QD
     Dates: start: 20180824
  2. OPSUMIT [Suspect]
     Active Substance: MACITENTAN
     Indication: PULMONARY ARTERIAL HYPERTENSION
     Dosage: 10 MG, QD
     Route: 048
     Dates: start: 20180824
  3. FUROSEMIDE. [Concomitant]
     Active Substance: FUROSEMIDE
     Dosage: 20 MG, QD
     Dates: start: 20180824
  4. LORAZEPAM. [Concomitant]
     Active Substance: LORAZEPAM
     Dosage: 0.5 MG, PRN
     Dates: start: 201804
  5. ADCIRCA [Concomitant]
     Active Substance: TADALAFIL
     Dosage: 20 MG, QD
     Route: 048
     Dates: start: 20180824

REACTIONS (7)
  - Dyspnoea [Recovering/Resolving]
  - Oesophageal infection [Unknown]
  - Chest pain [Unknown]
  - Pleural infection [Unknown]
  - Respiratory tract infection [Recovering/Resolving]
  - Dysphagia [Recovered/Resolved]
  - Bronchitis [Recovering/Resolving]

NARRATIVE: CASE EVENT DATE: 20180904
